FAERS Safety Report 11771567 (Version 1)
Quarter: 2015Q4

REPORT INFORMATION
  Report Type: Spontaneous
  Country: US (occurrence: None)
  Receive Date: 20151123
  Receipt Date: 20151123
  Transmission Date: 20160304
  Serious: Yes (Life-Threatening, Other)
  Sender: FDA-Public Use
  Company Number: None

PATIENT
  Age: 66 Year
  Sex: Female
  Weight: 70.31 kg

DRUGS (7)
  1. OXYCONTIN [Concomitant]
     Active Substance: OXYCODONE HYDROCHLORIDE
  2. MS CONTIN [Suspect]
     Active Substance: MORPHINE SULFATE
     Indication: PAIN
     Route: 048
     Dates: start: 20151117, end: 20151120
  3. MS CONTIN [Suspect]
     Active Substance: MORPHINE SULFATE
     Indication: FIBROMYALGIA
     Route: 048
     Dates: start: 20151117, end: 20151120
  4. METFORMIN [Concomitant]
     Active Substance: METFORMIN HYDROCHLORIDE
  5. METOPROLOL [Concomitant]
     Active Substance: METOPROLOL
  6. ZOCOR [Concomitant]
     Active Substance: SIMVASTATIN
  7. VITAMINS (CENTRUM) [Concomitant]

REACTIONS (8)
  - Blood pressure increased [None]
  - Palpitations [None]
  - Fear [None]
  - Product substitution issue [None]
  - Feeling hot [None]
  - Erythema [None]
  - Skin discolouration [None]
  - Heart rate increased [None]

NARRATIVE: CASE EVENT DATE: 20151017
